FAERS Safety Report 6730076-8 (Version None)
Quarter: 2010Q2

REPORT INFORMATION
  Report Type: 
  Country: None (occurrence: None)
  Receive Date: 20100513
  Receipt Date: 20100430
  Transmission Date: 20101027
  Serious: Yes (Hospitalization, Other)
  Sender: FDA-Public Use
  Company Number: 2008-183474-NL

PATIENT
  Age: 29 Year
  Sex: Female
  Weight: 74.8 kg

DRUGS (12)
  1. NUVARING [Suspect]
     Indication: DRUG USE FOR UNKNOWN INDICATION
     Dosage: 1 DF;QM;VAG
     Route: 067
     Dates: start: 20050429, end: 20080106
  2. ADVIL LIQUI-GELS [Concomitant]
  3. CEPHALEXIN [Concomitant]
  4. MEPERIDINE HCL [Concomitant]
  5. DIAZEPAM [Concomitant]
  6. PROMETHAZINE [Concomitant]
  7. HYDROCODONE BITARTRATE AND ACETAMINOPHEN [Concomitant]
  8. CALCIUM [Concomitant]
  9. LORTAB [Concomitant]
  10. MULTI-VITAMIN [Concomitant]
  11. HYDROXYCUT [Concomitant]
  12. CLA [Concomitant]

REACTIONS (18)
  - BRONCHITIS [None]
  - DEEP VEIN THROMBOSIS [None]
  - DIZZINESS [None]
  - DYSPNOEA EXERTIONAL [None]
  - EXERCISE TOLERANCE DECREASED [None]
  - HYPOTENSION [None]
  - INJECTION SITE PAIN [None]
  - LEUKOCYTOSIS [None]
  - LIPODYSTROPHY ACQUIRED [None]
  - MITRAL VALVE PROLAPSE [None]
  - NAUSEA [None]
  - OEDEMA PERIPHERAL [None]
  - PLEURITIC PAIN [None]
  - PULMONARY EMBOLISM [None]
  - TACHYCARDIA [None]
  - THROMBOCYTOSIS [None]
  - UPPER RESPIRATORY TRACT INFECTION [None]
  - VOMITING [None]
